FAERS Safety Report 18054026 (Version 3)
Quarter: 2020Q4

REPORT INFORMATION
  Report Type: Spontaneous
  Country: US (occurrence: US)
  Receive Date: 20200722
  Receipt Date: 20201026
  Transmission Date: 20210113
  Serious: Yes (Other)
  Sender: FDA-Public Use
  Company Number: US-PFIZER INC-2020278941

PATIENT
  Age: 63 Year
  Sex: Female
  Weight: 81 kg

DRUGS (2)
  1. TOVIAZ [Suspect]
     Active Substance: FESOTERODINE FUMARATE
     Dosage: 4 MG
  2. TOVIAZ [Suspect]
     Active Substance: FESOTERODINE FUMARATE
     Indication: URINARY INCONTINENCE
     Dosage: 8 MG, DAILY
     Route: 048
     Dates: start: 2018

REACTIONS (6)
  - Therapeutic product effect incomplete [Unknown]
  - Brain hypoxia [Unknown]
  - Cardiac disorder [Unknown]
  - Somnolence [Unknown]
  - Intentional product misuse [Unknown]
  - Fibromyalgia [Unknown]

NARRATIVE: CASE EVENT DATE: 2018
